FAERS Safety Report 21364383 (Version 1)
Quarter: 2022Q3

REPORT INFORMATION
  Report Type: Spontaneous
  Country: DK (occurrence: None)
  Receive Date: 20220922
  Receipt Date: 20220922
  Transmission Date: 20221026
  Serious: Yes (Hospitalization)
  Sender: FDA-Public Use
  Company Number: 2022A319133

PATIENT
  Age: 48 Year
  Sex: Female

DRUGS (2)
  1. OMEPRAZOLE [Interacting]
     Active Substance: OMEPRAZOLE
     Indication: Gastric pH decreased
     Dosage: DOSAGE: UNKNOWN, STRENGTH: UNKNOWN
     Route: 048
     Dates: start: 20170127, end: 20170201
  2. CLOZAPINE [Interacting]
     Active Substance: CLOZAPINE
     Indication: Schizophrenia
     Dosage: DOSAGE: UNKNOWN, STRENGTH: UNKNOWN
     Route: 048

REACTIONS (2)
  - Drug interaction [Unknown]
  - Psychotic disorder [Not Recovered/Not Resolved]

NARRATIVE: CASE EVENT DATE: 20170223
